FAERS Safety Report 13393593 (Version 1)
Quarter: 2017Q1

REPORT INFORMATION
  Report Type: Spontaneous
  Country: BR (occurrence: BR)
  Receive Date: 20170331
  Receipt Date: 20170331
  Transmission Date: 20170429
  Serious: Yes (Hospitalization, Other)
  Sender: FDA-Public Use
  Company Number: BR-009507513-1703BRA012017

PATIENT
  Age: 26 Year
  Sex: Female
  Weight: 70 kg

DRUGS (4)
  1. NUVARING [Suspect]
     Active Substance: ETHINYL ESTRADIOL\ETONOGESTREL
     Indication: MENSTRUAL CYCLE MANAGEMENT
     Dosage: 1 RING, QM
     Route: 067
     Dates: start: 2009, end: 20170301
  2. NUVARING [Suspect]
     Active Substance: ETHINYL ESTRADIOL\ETONOGESTREL
     Dosage: 1 RING, QM
     Route: 067
     Dates: start: 20170308
  3. DIPYRONE [Suspect]
     Active Substance: DIPYRONE
     Indication: PYREXIA
     Dosage: 30 OR 40 DROPS AT NIGHT FOR FEVER
     Dates: start: 2014
  4. REDOXON PLUS ZINC [Concomitant]

REACTIONS (13)
  - Epiglottic oedema [Recovered/Resolved]
  - Unintended pregnancy [Recovered/Resolved]
  - Nasopharyngitis [Not Recovered/Not Resolved]
  - Swelling face [Unknown]
  - Abortion of ectopic pregnancy [Recovered/Resolved]
  - Pyrexia [Not Recovered/Not Resolved]
  - Metrorrhagia [Not Recovered/Not Resolved]
  - Ectopic pregnancy [Recovered/Resolved]
  - Menstrual disorder [Unknown]
  - Menstrual disorder [Not Recovered/Not Resolved]
  - Product use issue [Unknown]
  - Menorrhagia [Unknown]
  - Pregnancy with contraceptive device [Recovered/Resolved]

NARRATIVE: CASE EVENT DATE: 2009
